FAERS Safety Report 5033375-3 (Version None)
Quarter: 2006Q2

REPORT INFORMATION
  Report Type: 
  Country: None (occurrence: None)
  Receive Date: 20060620
  Receipt Date: 20060607
  Transmission Date: 20061013
  Serious: Yes (Life-Threatening, Hospitalization, Other)
  Sender: FDA-Public Use
  Company Number: 2006073183

PATIENT
  Age: 47 Year
  Sex: Female
  Weight: 55.3 kg

DRUGS (1)
  1. SUTENT [Suspect]
     Indication: METASTATIC RENAL CELL CARCINOMA
     Dosage: 50 MG (50 MG, FOR 28 DAYS), ORAL
     Route: 048

REACTIONS (15)
  - AMMONIA INCREASED [None]
  - APHAGIA [None]
  - BILIARY SEPSIS [None]
  - CONFUSIONAL STATE [None]
  - DEPRESSED LEVEL OF CONSCIOUSNESS [None]
  - DISSEMINATED INTRAVASCULAR COAGULATION [None]
  - GENERAL PHYSICAL HEALTH DETERIORATION [None]
  - HEPATIC FAILURE [None]
  - INCONTINENCE [None]
  - LACTIC ACIDOSIS [None]
  - MELAENA [None]
  - METABOLIC ACIDOSIS [None]
  - PEPTIC ULCER [None]
  - THROMBOCYTOPENIA [None]
  - THYROTOXIC CRISIS [None]
